FAERS Safety Report 26217801 (Version 1)
Quarter: 2025Q4

REPORT INFORMATION
  Report Type: Spontaneous
  Country: US (occurrence: US)
  Receive Date: 20251231
  Receipt Date: 20251231
  Transmission Date: 20260117
  Serious: Yes (Hospitalization, Other)
  Sender: IPSEN BIOPHARMACEUTICALS, INC.
  Company Number: US-IPSEN Group, Research and Development-2025-28805

PATIENT
  Age: 49 Year
  Sex: Female
  Weight: 99 kg

DRUGS (15)
  1. TAZVERIK [Suspect]
     Active Substance: TAZEMETOSTAT HYDROBROMIDE
     Indication: Nasal sinus cancer
     Dosage: 800MG TWICE DAILY
     Route: 048
     Dates: start: 20251023
  2. TAZVERIK [Suspect]
     Active Substance: TAZEMETOSTAT HYDROBROMIDE
     Indication: Off label use
  3. ACYCLOVIR [Concomitant]
     Active Substance: ACYCLOVIR
  4. DILAUDID [Concomitant]
     Active Substance: HYDROMORPHONE HYDROCHLORIDE
  5. ELIQUIS [Concomitant]
     Active Substance: APIXABAN
  6. LINZESS [Concomitant]
     Active Substance: LINACLOTIDE
  7. LYRICA [Concomitant]
     Active Substance: PREGABALIN
  8. METHADONE [Concomitant]
     Active Substance: METHADONE HYDROCHLORIDE
  9. METHOCARBAMOL [Concomitant]
     Active Substance: METHOCARBAMOL
  10. OLANZAPINE [Concomitant]
     Active Substance: OLANZAPINE
  11. SENNA [Concomitant]
     Active Substance: SENNOSIDES
  12. SERTRALINE [Concomitant]
     Active Substance: SERTRALINE HYDROCHLORIDE
  13. TRAZODONE [Concomitant]
     Active Substance: TRAZODONE HYDROCHLORIDE
  14. XANAX [Concomitant]
     Active Substance: ALPRAZOLAM
  15. ZOFRAN [Concomitant]
     Active Substance: ONDANSETRON HYDROCHLORIDE

REACTIONS (7)
  - Neoplasm swelling [Recovered/Resolved]
  - Tumour compression [Recovered/Resolved]
  - Vision blurred [Recovered/Resolved]
  - Surgery [Unknown]
  - Off label use [Unknown]
  - Fatigue [Recovering/Resolving]
  - Product dose omission issue [Unknown]

NARRATIVE: CASE EVENT DATE: 20251023
